FAERS Safety Report 7921403-4 (Version None)
Quarter: 2011Q4

REPORT INFORMATION
  Report Type: 
  Country: None (occurrence: None)
  Receive Date: 20111117
  Receipt Date: 20111110
  Transmission Date: 20120403
  Serious: Yes (Other)
  Sender: FDA-Public Use
  Company Number: US-NAPPMUNDI-USA-2010-0046611

PATIENT
  Sex: Male

DRUGS (2)
  1. OXYCONTIN [Suspect]
     Indication: PRODUCT USED FOR UNKNOWN INDICATION
     Dosage: 240 MG, TID
  2. OXYCONTIN [Suspect]
     Dosage: 40 MG, BID

REACTIONS (10)
  - PRODUCT SIZE ISSUE [None]
  - MEDICATION RESIDUE [None]
  - FOREIGN BODY [None]
  - COUGH [None]
  - FEELING ABNORMAL [None]
  - THROAT IRRITATION [None]
  - UNEVALUABLE EVENT [None]
  - RETCHING [None]
  - CHOKING [None]
  - DRUG EFFECT DECREASED [None]
